FAERS Safety Report 5467200-3 (Version None)
Quarter: 2007Q3

REPORT INFORMATION
  Report Type: 
  Country: None (occurrence: None)
  Receive Date: 20070925
  Receipt Date: 20070913
  Transmission Date: 20080115
  Serious: Yes (Hospitalization, Other)
  Sender: FDA-Public Use
  Company Number: US-ROCHE-515847

PATIENT
  Age: 57 Year
  Sex: Female

DRUGS (2)
  1. KLONOPIN [Suspect]
     Route: 065
     Dates: start: 19970101, end: 20070401
  2. KLONOPIN [Suspect]
     Route: 065
     Dates: start: 20070401

REACTIONS (13)
  - DELIRIUM [None]
  - FATIGUE [None]
  - HEPATIC ENZYME INCREASED [None]
  - MALAISE [None]
  - MIGRAINE [None]
  - PAIN [None]
  - PANIC REACTION [None]
  - SKIN DISORDER [None]
  - SKIN WRINKLING [None]
  - TACHYCARDIA [None]
  - URINE ANALYSIS ABNORMAL [None]
  - VASCULITIS [None]
  - VEIN DISORDER [None]
